FAERS Safety Report 9065790 (Version 2)
Quarter: 2013Q2

REPORT INFORMATION
  Report Type: Spontaneous
  Country: US (occurrence: US)
  Receive Date: 20130214
  Receipt Date: 20130522
  Transmission Date: 20140414
  Serious: Yes (Other)
  Sender: FDA-Public Use
  Company Number: US-JNJFOC-20130203191

PATIENT
  Sex: Female
  Weight: 77.11 kg

DRUGS (6)
  1. EXTRA STRENGTH TYLENOL [Suspect]
     Indication: HEADACHE
     Dosage: 2 CAPLETS
     Route: 048
  2. EXTRA STRENGTH TYLENOL [Suspect]
     Indication: TOOTHACHE
     Dosage: 2 CAPLETS
     Route: 048
  3. MULTIPLE VITAMIN [Concomitant]
     Indication: NUTRITIONAL SUPPLEMENTATION
     Route: 065
  4. ALDACTONE [Concomitant]
     Indication: BLOOD PRESSURE
     Route: 065
     Dates: start: 2005
  5. GLUCOPHAGE [Concomitant]
     Indication: DIABETES MELLITUS
     Route: 065
     Dates: start: 2003
  6. DIOVAN [Concomitant]
     Indication: HYPERTENSION
     Route: 065
     Dates: start: 2011

REACTIONS (3)
  - Abdominal discomfort [Recovered/Resolved]
  - Loss of consciousness [Recovered/Resolved]
  - Coeliac disease [None]
